FAERS Safety Report 5333910-1 (Version None)
Quarter: 2007Q2

REPORT INFORMATION
  Report Type: 
  Country: None (occurrence: None)
  Receive Date: 20070524
  Receipt Date: 20070516
  Transmission Date: 20071010
  Serious: Yes (Hospitalization, Other)
  Sender: FDA-Public Use
  Company Number: US-ELI_LILLY_AND_COMPANY-US200705002552

PATIENT
  Age: 83 Year
  Sex: Female

DRUGS (5)
  1. FORTEO [Suspect]
     Dosage: UNK, UNKNOWN
     Dates: start: 20070427
  2. NOVOLOG [Concomitant]
  3. HYZAAR [Concomitant]
     Indication: BLOOD PRESSURE
     Dates: end: 20070501
  4. COREG [Concomitant]
  5. DIURETICS [Concomitant]
     Dates: end: 20070501

REACTIONS (2)
  - HYPOTENSION [None]
  - LOSS OF CONSCIOUSNESS [None]
